FAERS Safety Report 12341507 (Version 40)
Quarter: 2021Q2

REPORT INFORMATION
  Report Type: Report from Study
  Country: CA (occurrence: CA)
  Receive Date: 20160506
  Receipt Date: 20210624
  Transmission Date: 20210716
  Serious: Yes (Hospitalization, Other)
  Sender: FDA-Public Use
  Company Number: PHHY2016CA003462

PATIENT
  Age: 79 Year
  Sex: Male

DRUGS (19)
  1. COVERSYL [Concomitant]
     Active Substance: PERINDOPRIL
     Dosage: 2 MG, QD
     Route: 065
     Dates: end: 20190712
  2. METONIA [Concomitant]
     Active Substance: METOCLOPRAMIDE
     Indication: PRODUCT USED FOR UNKNOWN INDICATION
     Dosage: 5 MG
     Route: 065
  3. SANDOSTATIN [Suspect]
     Active Substance: OCTREOTIDE ACETATE
     Indication: CARCINOID TUMOUR OF THE SMALL BOWEL
     Dosage: 100 UG, TID
     Route: 058
     Dates: start: 201512
  4. SANDOSTATIN LAR DEPOT [Suspect]
     Active Substance: OCTREOTIDE ACETATE
     Indication: CARCINOID TUMOUR OF THE SMALL BOWEL
     Dosage: 30 MG, QMO (EVERY 4 WEEKS)
     Route: 030
     Dates: start: 20160128
  5. SANDOSTATIN [Suspect]
     Active Substance: OCTREOTIDE ACETATE
  6. SANDOSTATIN LAR DEPOT [Suspect]
     Active Substance: OCTREOTIDE ACETATE
     Indication: CARCINOID SYNDROME
     Dosage: 40 MG, QMO {EVERY 4 WEEKS}
     Route: 030
     Dates: start: 20160128, end: 20160421
  7. SANDOSTATIN LAR DEPOT [Suspect]
     Active Substance: OCTREOTIDE ACETATE
     Indication: ABDOMINAL DISCOMFORT
     Dosage: UNK UNK, BID (2 X 20MG TWICE)
     Route: 065
     Dates: start: 20181109
  8. SANDOSTATIN LAR DEPOT [Suspect]
     Active Substance: OCTREOTIDE ACETATE
     Indication: METASTASIS
     Dosage: 40 MG, QMO (EVERY 4 WEEKS)
     Route: 030
  9. AMLODIPINE [Concomitant]
     Active Substance: AMLODIPINE BESYLATE
     Dosage: 5 MG, QD
     Route: 048
     Dates: start: 20191129
  10. EYE DROPS [Concomitant]
     Active Substance: UNSPECIFIED INGREDIENT
     Indication: PRODUCT USED FOR UNKNOWN INDICATION
     Dosage: UNK
     Route: 065
  11. ERTAPENEM. [Concomitant]
     Active Substance: ERTAPENEM SODIUM
     Indication: PRODUCT USED FOR UNKNOWN INDICATION
     Dosage: 30 MG, QD (1,000MG VIA PICC LINE INFUSED 30 MG ONCE DAILY)
     Route: 065
     Dates: start: 20161208
  12. SANDOSTATIN LAR DEPOT [Suspect]
     Active Substance: OCTREOTIDE ACETATE
     Indication: METASTASES TO LIVER
     Dosage: 40 MG, QMO (EVERY 4 WEEKS)
     Route: 030
     Dates: start: 20160506
  13. BACLOFEN. [Suspect]
     Active Substance: BACLOFEN
     Indication: PRODUCT USED FOR UNKNOWN INDICATION
     Dosage: UNK
     Route: 065
  14. BABY ASPIRIN [Concomitant]
     Active Substance: ASPIRIN
     Indication: PRODUCT USED FOR UNKNOWN INDICATION
     Dosage: UNK
     Route: 065
  15. SANDOSTATIN [Suspect]
     Active Substance: OCTREOTIDE ACETATE
  16. AMLODIPINE [Concomitant]
     Active Substance: AMLODIPINE BESYLATE
     Indication: HYPERTENSION
     Dosage: 5 MG, QD
     Route: 065
     Dates: start: 20161210
  17. COVERSYL [Concomitant]
     Active Substance: PERINDOPRIL
     Indication: BLOOD PRESSURE INCREASED
     Dosage: 5 MG, QD STRENGTH 5 MG
     Route: 065
     Dates: start: 20161210
  18. COVERSYL [Concomitant]
     Active Substance: PERINDOPRIL
     Dosage: 2 MG, QD STRENGTH 2 MG
     Route: 065
     Dates: end: 2016
  19. HYDROMORPH [Concomitant]
     Active Substance: HYDROMORPHONE
     Indication: PRODUCT USED FOR UNKNOWN INDICATION
     Dosage: 1 MG, Q3H
     Route: 065

REACTIONS (39)
  - Bladder neoplasm [Unknown]
  - Sciatica [Unknown]
  - Diarrhoea [Unknown]
  - Faeces discoloured [Unknown]
  - Flatulence [Unknown]
  - Cholelithiasis [Unknown]
  - Abdominal adhesions [Unknown]
  - Heart rate decreased [Unknown]
  - Acne [Unknown]
  - Chest discomfort [Unknown]
  - Blood urine present [Unknown]
  - Pruritus [Unknown]
  - Bronchitis [Unknown]
  - Liver abscess [Unknown]
  - Metastases to liver [Unknown]
  - Body temperature decreased [Unknown]
  - Injection site pain [Recovered/Resolved]
  - Incision site complication [Unknown]
  - Hepatic lesion [Unknown]
  - Faeces soft [Unknown]
  - Influenza [Unknown]
  - Intercepted product administration error [Unknown]
  - Rash [Unknown]
  - Intestinal obstruction [Unknown]
  - Throat irritation [Unknown]
  - Erythema [Unknown]
  - Weight decreased [Unknown]
  - Enlarged uvula [Unknown]
  - Blood pressure increased [Unknown]
  - Incorrect dose administered [Unknown]
  - Injection site haemorrhage [Unknown]
  - Scar [Unknown]
  - Nasal polyps [Unknown]
  - Flushing [Unknown]
  - Sinusitis [Unknown]
  - Chest pain [Unknown]
  - Abdominal distension [Unknown]
  - Constipation [Recovering/Resolving]
  - Injection site pain [Not Recovered/Not Resolved]

NARRATIVE: CASE EVENT DATE: 20160206
